FAERS Safety Report 7260746-7 (Version None)
Quarter: 2011Q1

REPORT INFORMATION
  Report Type: 
  Country: None (occurrence: None)
  Receive Date: 20110130
  Receipt Date: 20101222
  Transmission Date: 20110831
  Serious: No
  Sender: FDA-Public Use
  Company Number: US-ABBOTT-10P-163-0693483-00

PATIENT
  Age: 42 Year
  Sex: Female

DRUGS (3)
  1. HYDROCODONE [Concomitant]
     Indication: PAIN
  2. HUMIRA [Suspect]
     Indication: RHEUMATOID ARTHRITIS
     Dates: start: 20091209
  3. NAPROXEN [Concomitant]
     Indication: ARTHRITIS

REACTIONS (7)
  - IMPAIRED HEALING [None]
  - SKIN LESION [None]
  - MULTIPLE ALLERGIES [None]
  - SINUSITIS [None]
  - ACNE [None]
  - ASTHMA [None]
  - CYSTITIS [None]
